FAERS Safety Report 19911231 (Version 1)
Quarter: 2021Q4

REPORT INFORMATION
  Report Type: Other
  Country: US (occurrence: US)
  Receive Date: 20211004
  Receipt Date: 20211004
  Transmission Date: 20220304
  Serious: Yes (Other)
  Sender: FDA-Public Use
  Company Number: US-ROCHE-2924027

PATIENT

DRUGS (1)
  1. POLATUZUMAB VEDOTIN [Suspect]
     Active Substance: POLATUZUMAB VEDOTIN
     Indication: Lymphoma
     Route: 065

REACTIONS (6)
  - Hepatotoxicity [Unknown]
  - Haematotoxicity [Unknown]
  - Pain [Unknown]
  - Fatigue [Unknown]
  - Diarrhoea [Unknown]
  - Neuropathy peripheral [Unknown]
